FAERS Safety Report 16584924 (Version 1)
Quarter: 2019Q3

REPORT INFORMATION
  Report Type: Spontaneous
  Country: US (occurrence: US)
  Receive Date: 20190604
  Receipt Date: 20190604
  Transmission Date: 20191004
  Serious: Yes (Hospitalization)
  Sender: FDA-Public Use
  Company Number: None

PATIENT
  Age: 75 Year
  Sex: Female
  Weight: 66.68 kg

DRUGS (4)
  1. DEXAMETHASONE. [Suspect]
     Active Substance: DEXAMETHASONE
     Dates: end: 20190524
  2. LENALIDOMIDE3 (CC-5013) [Suspect]
     Active Substance: LENALIDOMIDE
     Dates: end: 20190524
  3. VELCADE [Suspect]
     Active Substance: BORTEZOMIB
     Dates: end: 20190523
  4. VELCADE [Suspect]
     Active Substance: BORTEZOMIB

REACTIONS (2)
  - Pneumonia [None]
  - Parainfluenzae virus infection [None]

NARRATIVE: CASE EVENT DATE: 20190525
